FAERS Safety Report 20535284 (Version 2)
Quarter: 2022Q1

REPORT INFORMATION
  Report Type: Spontaneous
  Country: SE (occurrence: SE)
  Receive Date: 20220302
  Receipt Date: 20220321
  Transmission Date: 20220423
  Serious: Yes (Disabling)
  Sender: FDA-Public Use
  Company Number: None

PATIENT
  Age: 48 Year
  Sex: Male
  Weight: 129 kg

DRUGS (5)
  1. JARDIANCE [Suspect]
     Active Substance: EMPAGLIFLOZIN
     Indication: Diabetes mellitus
     Dosage: FORM- FILMDRAGERAD TABLETT
     Route: 048
     Dates: start: 20150821, end: 20220210
  2. SERETIDE [Concomitant]
     Active Substance: FLUTICASONE PROPIONATE\SALMETEROL XINAFOATE
     Indication: Product used for unknown indication
     Dosage: DOSE- 4 DOSAGE FORM?INHALATION SPRAY, SUSPENSION
     Route: 055
     Dates: start: 20171027
  3. Acetylcystein Alternova 200 mg Brustablett [Concomitant]
     Indication: Product used for unknown indication
     Route: 048
     Dates: start: 20170509
  4. VICTOZA [Concomitant]
     Active Substance: LIRAGLUTIDE
     Indication: Product used for unknown indication
     Dosage: FORM- INJECTION FLUID, SOLUTION IN PREFILLED INJECTION PEN.
     Route: 058
     Dates: start: 20180905
  5. LOPERAMIDE HYDROCHLORIDE [Concomitant]
     Active Substance: LOPERAMIDE HYDROCHLORIDE
     Indication: Product used for unknown indication
     Dosage: UNIT DOSE 1
     Route: 048
     Dates: start: 20151210

REACTIONS (2)
  - Dry mouth [Recovered/Resolved]
  - Tooth loss [Not Recovered/Not Resolved]

NARRATIVE: CASE EVENT DATE: 20180101
